FAERS Safety Report 25101493 (Version 1)
Quarter: 2025Q1

REPORT INFORMATION
  Report Type: Spontaneous
  Country: ES (occurrence: ES)
  Receive Date: 20250320
  Receipt Date: 20250320
  Transmission Date: 20250408
  Serious: Yes (Hospitalization, Other)
  Sender: MYLAN
  Company Number: ES-IPSEN Group, Research and Development-2025-04665

PATIENT
  Age: 50 Year
  Sex: Male

DRUGS (5)
  1. EVEROLIMUS [Suspect]
     Active Substance: EVEROLIMUS
     Indication: Clear cell renal cell carcinoma
  2. LENVATINIB [Suspect]
     Active Substance: LENVATINIB
     Indication: Clear cell renal cell carcinoma
  3. CABOMETYX [Suspect]
     Active Substance: CABOZANTINIB S-MALATE
     Indication: Clear cell renal cell carcinoma
     Dosage: 60 MILLIGRAM, QD
     Dates: start: 20220124
  4. CABOMETYX [Suspect]
     Active Substance: CABOZANTINIB S-MALATE
  5. CABOMETYX [Suspect]
     Active Substance: CABOZANTINIB S-MALATE

REACTIONS (15)
  - Cervical spinal stenosis [Unknown]
  - Diverticulum intestinal [Unknown]
  - Hypertrophy [Unknown]
  - Abdominal distension [Unknown]
  - Flank pain [Unknown]
  - Malignant neoplasm progression [Unknown]
  - Dizziness [Unknown]
  - Neuralgia [Unknown]
  - Nerve compression [Unknown]
  - Mucosal toxicity [Unknown]
  - Headache [Unknown]
  - Diarrhoea [Unknown]
  - Mucosal inflammation [Unknown]
  - Mouth ulceration [Unknown]
  - Hypertension [Unknown]

NARRATIVE: CASE EVENT DATE: 20230705
